FAERS Safety Report 5862646-3 (Version None)
Quarter: 2008Q3

REPORT INFORMATION
  Report Type: 
  Country: None (occurrence: None)
  Receive Date: 20080827
  Receipt Date: 20080827
  Transmission Date: 20090109
  Serious: Yes (Other)
  Sender: FDA-Public Use
  Company Number: None

PATIENT
  Age: 14 Year
  Sex: Male
  Weight: 40.8237 kg

DRUGS (1)
  1. RISPERDAL [Suspect]
     Indication: AGGRESSION
     Dosage: 0.5MG TID PO
     Route: 048
     Dates: start: 20080730, end: 20080805

REACTIONS (1)
  - EPISTAXIS [None]
